FAERS Safety Report 8058173-8 (Version None)
Quarter: 2012Q1

REPORT INFORMATION
  Report Type: 
  Country: None (occurrence: None)
  Receive Date: 20120120
  Receipt Date: 20120110
  Transmission Date: 20120608
  Serious: Yes (Other)
  Sender: FDA-Public Use
  Company Number: US-BAYER-2011-033971

PATIENT
  Age: 25 Year
  Sex: Female

DRUGS (15)
  1. PERCOCET [Concomitant]
     Dosage: UNK UNK, PRN
     Route: 048
  2. ZYRTEC [Concomitant]
     Dosage: 10 MG, QD
     Route: 048
  3. AMITIZA [Concomitant]
     Dosage: 8 MG, QD
     Route: 048
  4. CAPADEX [Concomitant]
     Dosage: 60 MG, QD
     Route: 048
  5. CYMBALTA [Concomitant]
     Dosage: 60 MG, QD
     Route: 048
  6. YAZ [Suspect]
     Indication: ACNE
     Route: 048
  7. CELEBREX [Concomitant]
     Dosage: 200 MG, QD
     Route: 048
  8. CYCLOBENZAPRINE [Concomitant]
     Dosage: 10 MG, QD
     Route: 048
  9. TRAMADOL HCL [Concomitant]
     Dosage: 50 MG, QD
     Route: 048
  10. ZOLPIDEM [Concomitant]
     Dosage: 10 MG, QD
     Route: 048
  11. PROPRANOLOL [Concomitant]
     Dosage: 80 MG, QD
     Route: 048
  12. ALIGN PROBIOTICS [Concomitant]
     Dosage: UNK UNK, QD
     Route: 048
  13. PROMETHAZINE [Concomitant]
     Dosage: 25 MG, PRN
     Route: 048
  14. IMITREX [Concomitant]
     Dosage: 100 MG, PRN
     Route: 048
  15. DICYCLOMINE [Concomitant]
     Dosage: 10 MG, BID
     Route: 048

REACTIONS (7)
  - PULMONARY EMBOLISM [None]
  - INJURY [None]
  - ANXIETY [None]
  - DEEP VEIN THROMBOSIS [None]
  - CHOLECYSTITIS CHRONIC [None]
  - PAIN [None]
  - GALLBLADDER INJURY [None]
